FAERS Safety Report 7234364-0 (Version None)
Quarter: 2011Q1

REPORT INFORMATION
  Report Type: 
  Country: None (occurrence: None)
  Receive Date: 20110119
  Receipt Date: 20101217
  Transmission Date: 20110831
  Serious: Yes (Hospitalization)
  Sender: FDA-Public Use
  Company Number: US-BAYER-201024609NA

PATIENT
  Sex: Female
  Weight: 82.993 kg

DRUGS (18)
  1. FIBER [Concomitant]
  2. YAZ [Suspect]
     Indication: ALOPECIA
  3. PROMETHAZINE HYDROCHLORIDE [Concomitant]
     Indication: NAUSEA
     Dosage: 25 MG, PRN
     Route: 048
  4. ACETAMINOPHEN [Concomitant]
  5. PAMELOR [Concomitant]
  6. NEXIUM [Concomitant]
     Dosage: 40 MG, QD
     Route: 048
  7. XANAX [Concomitant]
     Dosage: 1 MG, PRN
     Route: 048
  8. YAZ [Suspect]
     Indication: HORMONE LEVEL ABNORMAL
  9. ACIPHEX [Concomitant]
     Dosage: 20 MG, QD
     Route: 048
  10. LODINE XL [Concomitant]
     Indication: PAIN
     Dosage: 400 MG, BID
     Route: 048
  11. YAZ [Suspect]
     Indication: ACNE
     Route: 048
     Dates: start: 20070601, end: 20090101
  12. BIOTIN [Concomitant]
  13. ZOLOFT [Concomitant]
     Indication: ANXIETY
     Dates: start: 20040101
  14. UNCODEABLE ^UNCLASSIFIABLE^ [Concomitant]
  15. VITAMIN E [Concomitant]
  16. TOPROL-XL [Concomitant]
  17. FISH OIL [Concomitant]
  18. DIFFERIN [Concomitant]

REACTIONS (12)
  - PORTAL TRIADITIS [None]
  - POST PROCEDURAL COMPLICATION [None]
  - CONSTIPATION [None]
  - PAIN [None]
  - GALLBLADDER PAIN [None]
  - CHOLECYSTITIS CHRONIC [None]
  - NAUSEA [None]
  - ABDOMINAL PAIN UPPER [None]
  - SPLENOMEGALY [None]
  - VOMITING [None]
  - CHOLELITHIASIS [None]
  - ABDOMINAL PAIN [None]
